FAERS Safety Report 5164734-6 (Version None)
Quarter: 2006Q4

REPORT INFORMATION
  Report Type: 
  Country: None (occurrence: None)
  Receive Date: 20061205
  Receipt Date: 20010130
  Transmission Date: 20070319
  Serious: Yes (Hospitalization)
  Sender: FDA-Public Use
  Company Number: FR-GLAXOSMITHKLINE-B0098442A

PATIENT
  Age: 21 Month
  Sex: Female
  Weight: 12.6 kg

DRUGS (4)
  1. ZIDOVUDINE [Suspect]
     Indication: ANTIVIRAL PROPHYLAXIS
     Route: 048
     Dates: start: 19970827
  2. LAMIVUDINE [Suspect]
     Indication: ANTIVIRAL PROPHYLAXIS
     Route: 048
     Dates: start: 19970827
  3. ZIDOVUDINE [Suspect]
     Route: 048
  4. LAMIVUDINE [Suspect]
     Route: 048

REACTIONS (11)
  - ABDOMINAL DISTENSION [None]
  - APHTHOUS STOMATITIS [None]
  - BLOOD LACTIC ACID INCREASED [None]
  - CONVULSION [None]
  - DRUG EXPOSURE DURING PREGNANCY [None]
  - LIPIDS INCREASED [None]
  - MALAISE [None]
  - PRODUCTIVE COUGH [None]
  - PYREXIA [None]
  - RALES [None]
  - STRABISMUS [None]
